FAERS Safety Report 6582432-9 (Version None)
Quarter: 2010Q1

REPORT INFORMATION
  Report Type: 
  Country: None (occurrence: None)
  Receive Date: 20100216
  Receipt Date: 20100203
  Transmission Date: 20100710
  Serious: Yes (Other)
  Sender: FDA-Public Use
  Company Number: PHEH2008US07502

PATIENT
  Sex: Male

DRUGS (7)
  1. ZOMETA [Suspect]
     Dosage: UNK
  2. OXYCONTIN [Concomitant]
  3. CHEMOTHERAPEUTICS NOS [Concomitant]
  4. XANAX [Concomitant]
  5. AVINZA [Concomitant]
  6. HYDROCODONE [Concomitant]
  7. TIZANIDINE HCL [Concomitant]

REACTIONS (15)
  - ANHEDONIA [None]
  - ANXIETY [None]
  - BONE DISORDER [None]
  - COMPRESSION FRACTURE [None]
  - DISABILITY [None]
  - ECONOMIC PROBLEM [None]
  - EMPHYSEMA [None]
  - HAEMATURIA [None]
  - HIP ARTHROPLASTY [None]
  - INJURY [None]
  - LOOSE TOOTH [None]
  - LYMPHADENOPATHY [None]
  - OSTEONECROSIS [None]
  - PAIN [None]
  - PYREXIA [None]
